FAERS Safety Report 6358426-5 (Version None)
Quarter: 2009Q3

REPORT INFORMATION
  Report Type: 
  Country: None (occurrence: None)
  Receive Date: 20090916
  Receipt Date: 20090828
  Transmission Date: 20100115
  Serious: Yes (Hospitalization)
  Sender: FDA-Public Use
  Company Number: NO-EISAI INC.-E2020-05168-SPO-NO

PATIENT
  Sex: Male

DRUGS (13)
  1. ARICEPT [Suspect]
     Route: 048
     Dates: start: 20090825, end: 20090826
  2. MADOPAR 25/100 [Interacting]
     Indication: PARKINSON'S DISEASE
     Dosage: UNKNOWN
     Route: 048
  3. MADOPAR 25/100 [Interacting]
     Route: 048
  4. REQUIP [Interacting]
     Indication: PARKINSON'S DISEASE
     Route: 048
  5. ELDEPRYL [Interacting]
     Indication: PARKINSON'S DISEASE
     Route: 048
  6. ORFIRIL [Concomitant]
     Indication: DRUG USE FOR UNKNOWN INDICATION
     Route: 048
  7. SEROQUEL [Concomitant]
     Indication: DRUG USE FOR UNKNOWN INDICATION
     Route: 048
  8. FLAGYL [Concomitant]
     Indication: DRUG USE FOR UNKNOWN INDICATION
     Route: 048
     Dates: end: 20090809
  9. SOMAC [Concomitant]
     Indication: DRUG USE FOR UNKNOWN INDICATION
     Route: 048
  10. CALCIGRAN FORTE [Concomitant]
     Indication: DRUG USE FOR UNKNOWN INDICATION
     Dosage: 500 MG/10 MIKROG
  11. BRONKYL [Concomitant]
     Indication: DRUG USE FOR UNKNOWN INDICATION
     Route: 048
  12. TRIOBE [Concomitant]
     Indication: DRUG USE FOR UNKNOWN INDICATION
     Route: 048
  13. CETIRIZINE HCL [Concomitant]

REACTIONS (4)
  - COLD SWEAT [None]
  - DRUG INTERACTION [None]
  - HYPERHIDROSIS [None]
  - UNRESPONSIVE TO STIMULI [None]
